FAERS Safety Report 16480096 (Version 1)
Quarter: 2019Q2

REPORT INFORMATION
  Report Type: Spontaneous
  Country: BR (occurrence: BR)
  Receive Date: 20190626
  Receipt Date: 20190626
  Transmission Date: 20190711
  Serious: Yes (Hospitalization, Other)
  Sender: FDA-Public Use
  Company Number: PHHY2019BR144409

PATIENT
  Age: 6 Month
  Sex: Male
  Weight: 4.45 kg

DRUGS (1)
  1. BETAMETHASONE DIPROPIONATE. [Suspect]
     Active Substance: BETAMETHASONE DIPROPIONATE
     Indication: DERMATITIS DIAPER
     Dosage: UNK
     Route: 061

REACTIONS (5)
  - Failure to thrive [Unknown]
  - Cushing^s syndrome [Unknown]
  - Cushingoid [Unknown]
  - Hypertrichosis [Unknown]
  - Overdose [Unknown]
